APPROVED DRUG PRODUCT: NAMENDA
Active Ingredient: MEMANTINE HYDROCHLORIDE
Strength: 2MG/ML **Federal Register determination that product was not discontinued or withdrawn for safety or effectiveness reasons**
Dosage Form/Route: SOLUTION;ORAL
Application: N021627 | Product #001
Applicant: ALLERGAN SALES LLC
Approved: Apr 18, 2005 | RLD: Yes | RS: No | Type: DISCN